FAERS Safety Report 6922808-0 (Version None)
Quarter: 2010Q3

REPORT INFORMATION
  Report Type: 
  Country: None (occurrence: None)
  Receive Date: 20100813
  Receipt Date: 20100803
  Transmission Date: 20110219
  Serious: Yes (Other)
  Sender: FDA-Public Use
  Company Number: US-PFIZER INC-2010045874

PATIENT
  Sex: Female

DRUGS (14)
  1. CHANTIX [Suspect]
     Indication: SMOKING CESSATION THERAPY
     Dosage: STARTING AND CONTINUING PACKS
     Dates: start: 20070101, end: 20081001
  2. LEVOTHYROXINE [Concomitant]
     Indication: THYROID DISORDER
     Dosage: UNK
     Dates: start: 20070101
  3. VYTORIN [Concomitant]
     Indication: BLOOD CHOLESTEROL INCREASED
     Dosage: UNK
     Dates: start: 20070101
  4. HYDROCODONE [Concomitant]
     Indication: ARTHRALGIA
     Dosage: UNK
     Dates: start: 20020901, end: 20090901
  5. HYDROCODONE [Concomitant]
     Indication: MUSCULOSKELETAL PAIN
  6. HYDROCODONE [Concomitant]
     Indication: BACK PAIN
  7. CARISOPRODOL [Concomitant]
     Indication: MUSCLE RELAXANT THERAPY
     Dosage: UNK
     Dates: start: 20040201, end: 20091001
  8. XANAX [Concomitant]
     Indication: ANXIETY
     Dosage: UNK
     Dates: start: 19880101, end: 20090201
  9. XANAX [Concomitant]
     Indication: PANIC DISORDER
  10. VICODIN [Concomitant]
     Indication: ARTHRALGIA
     Dosage: UNK
     Dates: start: 20070101
  11. VICODIN [Concomitant]
     Indication: MUSCULOSKELETAL PAIN
  12. ALPRAZOLAM [Concomitant]
     Indication: ANXIETY
     Dosage: UNK
     Dates: start: 20040101, end: 20070901
  13. NAPROXEN [Concomitant]
     Indication: ARTHRALGIA
     Dosage: UNK
     Dates: start: 20070101
  14. NAPROXEN [Concomitant]
     Indication: MUSCULOSKELETAL PAIN

REACTIONS (19)
  - ABNORMAL DREAMS [None]
  - AGGRESSION [None]
  - ANGER [None]
  - ANXIETY [None]
  - ARTHRALGIA [None]
  - ATTENTION DEFICIT/HYPERACTIVITY DISORDER [None]
  - BONE PAIN [None]
  - CLAUSTROPHOBIA [None]
  - DEPRESSION [None]
  - FALL [None]
  - INSOMNIA [None]
  - LIMB INJURY [None]
  - LOSS OF CONSCIOUSNESS [None]
  - MENTAL DISORDER [None]
  - MOOD SWINGS [None]
  - MUSCULOSKELETAL PAIN [None]
  - PANIC ATTACK [None]
  - PERSONALITY DISORDER [None]
  - SUICIDAL IDEATION [None]
